FAERS Safety Report 5811197-0 (Version None)
Quarter: 2008Q3

REPORT INFORMATION
  Report Type: 
  Country: None (occurrence: None)
  Receive Date: 20080711
  Receipt Date: 20080414
  Transmission Date: 20090109
  Serious: No
  Sender: FDA-Public Use
  Company Number: 2008BM000079

PATIENT
  Age: 9 Month
  Sex: Male
  Weight: 11 kg

DRUGS (1)
  1. KUVAN [Suspect]
     Indication: PHENYLKETONURIA
     Dosage: 200 MG;QD;PO
     Route: 048
     Dates: start: 20080402, end: 20080413

REACTIONS (2)
  - DERMATITIS DIAPER [None]
  - DYSGEUSIA [None]
